FAERS Safety Report 6026776-8 (Version None)
Quarter: 2009Q1

REPORT INFORMATION
  Report Type: 
  Country: None (occurrence: None)
  Receive Date: 20090105
  Receipt Date: 20081229
  Transmission Date: 20090719
  Serious: Yes (Hospitalization)
  Sender: FDA-Public Use
  Company Number: FR-JNJFOC-20081206671

PATIENT
  Sex: Female

DRUGS (12)
  1. HALDOL FAIBLE [Suspect]
     Indication: THYMUS DISORDER
     Route: 048
  2. STILNOX [Suspect]
     Route: 048
  3. STILNOX [Suspect]
     Indication: INSOMNIA
     Route: 048
  4. ATACAND [Suspect]
     Indication: HYPERTENSION
     Route: 048
  5. STABLON [Suspect]
     Route: 048
  6. STABLON [Suspect]
     Indication: DEPRESSION
     Route: 048
  7. TEMESTA [Suspect]
     Indication: ANXIETY
     Route: 048
  8. INIPOMP [Concomitant]
     Route: 048
  9. DITROPAN [Concomitant]
     Route: 065
  10. TITANOREINE [Concomitant]
     Route: 065
  11. PROCTOLOG [Concomitant]
     Route: 065
  12. POLYKARAYA [Concomitant]
     Route: 065

REACTIONS (2)
  - FALL [None]
  - HYPOKINESIA [None]
